FAERS Safety Report 10730954 (Version 1)
Quarter: 2015Q1

REPORT INFORMATION
  Report Type: Spontaneous
  Country: US (occurrence: None)
  Receive Date: 20150120
  Receipt Date: 20150120
  Transmission Date: 20150721
  Serious: Yes (Other)
  Sender: FDA-Public Use
  Company Number: None

PATIENT
  Age: 62 Year
  Sex: Female
  Weight: 56.7 kg

DRUGS (1)
  1. CEPHALEXIN. [Suspect]
     Active Substance: CEPHALEXIN
     Indication: DIVERTICULITIS
     Dosage: 4 DOSES A DAY, TAKEN BY MOUTH
     Route: 048
     Dates: start: 20150113, end: 20150118

REACTIONS (3)
  - Pollakiuria [None]
  - Electrolyte depletion [None]
  - Muscle spasms [None]

NARRATIVE: CASE EVENT DATE: 20150119
